FAERS Safety Report 4622287-2 (Version None)
Quarter: 2005Q1

REPORT INFORMATION
  Report Type: 
  Country: None (occurrence: None)
  Receive Date: 20050324
  Receipt Date: 20050324
  Transmission Date: 20050727
  Serious: Yes (Death)
  Sender: FDA-Public Use
  Company Number: None

PATIENT
  Age: 47 Year
  Sex: Female
  Weight: 66.6 kg

DRUGS (1)
  1. PURINETHOL [Suspect]
     Indication: CROHN'S DISEASE
     Dosage: 1-3 TABS ORALLY DAILY [LONG TERM WITH DOSE INCR APPROX 1 WEEK AGO]
     Route: 048

REACTIONS (5)
  - IMMUNOSUPPRESSION [None]
  - MULTI-ORGAN FAILURE [None]
  - PANCYTOPENIA [None]
  - SEPTIC SHOCK [None]
  - TACHYCARDIA [None]
